FAERS Safety Report 24170149 (Version 1)
Quarter: 2024Q3

REPORT INFORMATION
  Report Type: Spontaneous
  Country: AU (occurrence: AU)
  Receive Date: 20240803
  Receipt Date: 20240803
  Transmission Date: 20241017
  Serious: Yes (Other)
  Sender: DR REDDYS
  Company Number: AU-AUS-LIT/AUS/24/0011261

PATIENT
  Age: 53 Year
  Sex: Female

DRUGS (23)
  1. LENALIDOMIDE [Suspect]
     Active Substance: LENALIDOMIDE
     Indication: Plasma cell myeloma
  2. AZACITIDINE [Suspect]
     Active Substance: AZACITIDINE
     Indication: Acute myeloid leukaemia
     Dosage: 3 CYCLES
  3. POSACONAZOLE [Suspect]
     Active Substance: POSACONAZOLE
     Indication: Antifungal prophylaxis
  4. DAPTOMYCIN [Suspect]
     Active Substance: DAPTOMYCIN
     Indication: Bacteraemia
  5. CASPOFUNGIN [Suspect]
     Active Substance: CASPOFUNGIN
     Indication: Systemic candida
  6. MELPHALAN [Suspect]
     Active Substance: MELPHALAN
     Indication: Chemotherapy
  7. VENETOCLAX [Suspect]
     Active Substance: VENETOCLAX
     Indication: Acute myeloid leukaemia
     Dosage: 3 CYCLES
  8. FLUDARABINE [Suspect]
     Active Substance: FLUDARABINE PHOSPHATE
     Indication: Chemotherapy
  9. THYMOGLOBULIN [Suspect]
     Active Substance: LAPINE T-LYMPHOCYTE IMMUNE GLOBULIN
     Indication: Chemotherapy
  10. PIPERACILLIN AND TAZOBACTAM [Suspect]
     Active Substance: PIPERACILLIN SODIUM\TAZOBACTAM SODIUM
     Indication: Evidence based treatment
  11. MEROPENEM [Suspect]
     Active Substance: MEROPENEM
     Indication: Evidence based treatment
  12. METHYLPREDNISOLONE [Suspect]
     Active Substance: METHYLPREDNISOLONE
     Indication: Epidermal necrosis
  13. HUMAN IMMUNOGLOBULIN G [Suspect]
     Active Substance: HUMAN IMMUNOGLOBULIN G
     Indication: Epidermal necrosis
  14. CYCLOSPORINE [Suspect]
     Active Substance: CYCLOSPORINE
     Indication: Epidermal necrosis
  15. MINERAL OIL\PETROLATUM [Suspect]
     Active Substance: MINERAL OIL\PETROLATUM
     Indication: Epidermal necrosis
     Dosage: TOPICAL CREAM
  16. CIPROFLOXACIN [Suspect]
     Active Substance: CIPROFLOXACIN
  17. LAMOTRIGINE [Suspect]
     Active Substance: LAMOTRIGINE
     Indication: Product used for unknown indication
  18. ANIDULAFUNGIN [Suspect]
     Active Substance: ANIDULAFUNGIN
     Indication: Systemic candida
  19. DIPROSONE [Suspect]
     Active Substance: BETAMETHASONE DIPROPIONATE
  20. CYTARABINE [Concomitant]
     Active Substance: CYTARABINE
     Indication: Acute myeloid leukaemia
     Dosage: (7+3) INDUCTION CHEMOTHERAPY
  21. CYTARABINE [Concomitant]
     Active Substance: CYTARABINE
     Indication: Plasma cell myeloma
  22. DAUNORUBICIN [Concomitant]
     Active Substance: DAUNORUBICIN
     Indication: Acute myeloid leukaemia
     Dosage: INDUCTION CHEMOTHERAPY
  23. DAUNORUBICIN [Concomitant]
     Active Substance: DAUNORUBICIN
     Indication: Plasma cell myeloma

REACTIONS (12)
  - Myelosuppression [Unknown]
  - Neutropenia [Unknown]
  - Thrombocytopenia [Unknown]
  - Febrile neutropenia [Unknown]
  - Epidermal necrosis [Unknown]
  - Stevens-Johnson syndrome [Unknown]
  - Systemic candida [Unknown]
  - Bacteraemia [Unknown]
  - Drug ineffective [Unknown]
  - Protothecosis [Unknown]
  - Toxic epidermal necrolysis [Unknown]
  - Product use in unapproved indication [Unknown]
